FAERS Safety Report 18776256 (Version 1)
Quarter: 2021Q1

REPORT INFORMATION
  Report Type: Other
  Country: US (occurrence: US)
  Receive Date: 20210123
  Receipt Date: 20210123
  Transmission Date: 20210419
  Serious: Yes (Other)
  Sender: FDA-Public Use
  Company Number: US-ROCHE-2751518

PATIENT
  Sex: Female
  Weight: 99.6 kg

DRUGS (1)
  1. XELODA [Suspect]
     Active Substance: CAPECITABINE
     Indication: GALLBLADDER CANCER
     Dosage: TAKE 4 TABLET(S) BY MOUTH TWICE A DAY AFTER MEALS, 14 DAYS
     Route: 048
     Dates: start: 20201231, end: 20210114

REACTIONS (4)
  - Deafness [Unknown]
  - Intentional product use issue [Unknown]
  - Off label use [Unknown]
  - Sinusitis [Unknown]
